FAERS Safety Report 8651357 (Version 4)
Quarter: 2012Q4

REPORT INFORMATION
  Report Type: Report from Study
  Country: BG (occurrence: BG)
  Receive Date: 20120705
  Receipt Date: 20121219
  Transmission Date: 20130627
  Serious: Yes (Hospitalization)
  Sender: FDA-Public Use
  Company Number: BG-BRISTOL-MYERS SQUIBB COMPANY-16723454

PATIENT
  Age: 45 Year
  Sex: Male

DRUGS (2)
  1. ARIPIPRAZOLE IM DEPOT [Suspect]
     Indication: SCHIZOPHRENIA
     Dosage: Interrupted:06Jun2012(7days). Also 10mg daily dose 31May-6Jn12
     Route: 030
     Dates: start: 20120531
  2. CONVULEX [Concomitant]
     Dates: start: 20100615

REACTIONS (1)
  - Schizophrenia [Recovered/Resolved]
